FAERS Safety Report 17508734 (Version 1)
Quarter: 2020Q1

REPORT INFORMATION
  Report Type: Spontaneous
  Country: US (occurrence: US)
  Receive Date: 20200305
  Receipt Date: 20200305
  Transmission Date: 20200409
  Serious: No
  Sender: FDA-Public Use
  Company Number: None

PATIENT
  Age: 71 Year
  Sex: Female

DRUGS (3)
  1. PANTOPRAZOLE 40 MG [Concomitant]
     Active Substance: PANTOPRAZOLE SODIUM
     Dates: start: 20180720
  2. RANITIDINE 150 MG [Concomitant]
     Active Substance: RANITIDINE
     Dates: start: 20150702
  3. OFEV [Suspect]
     Active Substance: NINTEDANIB
     Indication: IDIOPATHIC PULMONARY FIBROSIS
     Route: 048
     Dates: start: 20200214, end: 20200227

REACTIONS (5)
  - Rash [None]
  - Hypoaesthesia [None]
  - Neuralgia [None]
  - Burning sensation [None]
  - Hypokinesia [None]

NARRATIVE: CASE EVENT DATE: 20200227
